FAERS Safety Report 5769011-8 (Version None)
Quarter: 2008Q2

REPORT INFORMATION
  Report Type: 
  Country: None (occurrence: None)
  Receive Date: 20080612
  Receipt Date: 20080315
  Transmission Date: 20081010
  Serious: No
  Sender: FDA-Public Use
  Company Number: US-ABBOTT-08P-163-0443058-00

PATIENT
  Sex: Female
  Weight: 54.48 kg

DRUGS (3)
  1. HUMIRA [Suspect]
     Indication: CROHN'S DISEASE
     Route: 058
     Dates: start: 20070901, end: 20080302
  2. MESALAMINE [Concomitant]
     Indication: CROHN'S DISEASE
  3. AZATHOPRINE [Concomitant]
     Indication: CROHN'S DISEASE

REACTIONS (1)
  - SKIN INFECTION [None]
